FAERS Safety Report 15739471 (Version 1)
Quarter: 2018Q4

REPORT INFORMATION
  Report Type: Spontaneous
  Country: US (occurrence: US)
  Receive Date: 20181204
  Receipt Date: 20181204
  Transmission Date: 20190205
  Serious: No
  Sender: FDA-Public Use
  Company Number: None

PATIENT
  Age: 41 Year
  Sex: Female
  Weight: 60.75 kg

DRUGS (5)
  1. LYSINE 500 MG/DAY [Concomitant]
  2. VIT D 1000 IU [Concomitant]
  3. FISH OIL [Concomitant]
     Active Substance: FISH OIL
  4. ALDARA [Suspect]
     Active Substance: IMIQUIMOD
     Indication: PAPILLOMA VIRAL INFECTION
     Dosage: ?          QUANTITY:0.25 PACKET;OTHER FREQUENCY:2 OR 3 TIMES/WEEK;?
     Route: 061
     Dates: start: 20180912, end: 20181201
  5. BLUEBERRY EXTRACT [Concomitant]

REACTIONS (9)
  - Arthralgia [None]
  - Stress [None]
  - Ligament pain [None]
  - Back pain [None]
  - Myalgia [None]
  - Bone pain [None]
  - Pain in extremity [None]
  - Burning sensation [None]
  - Pain [None]

NARRATIVE: CASE EVENT DATE: 20181201
